FAERS Safety Report 6789196-4 (Version None)
Quarter: 2010Q2

REPORT INFORMATION
  Report Type: 
  Country: None (occurrence: None)
  Receive Date: 20100623
  Receipt Date: 20090429
  Transmission Date: 20101027
  Serious: Yes (Other)
  Sender: FDA-Public Use
  Company Number: US-PFIZER INC-2008056082

PATIENT
  Sex: Female
  Weight: 70.2 kg

DRUGS (18)
  1. PROVERA [Suspect]
     Indication: HORMONE REPLACEMENT THERAPY
     Dosage: 10MG/5MG UNK
     Route: 048
     Dates: start: 19910910, end: 20000306
  2. PREMARIN [Suspect]
     Indication: HORMONE REPLACEMENT THERAPY
     Dosage: UNK
     Dates: start: 19980101
  3. ESTRACE [Suspect]
     Indication: HORMONE REPLACEMENT THERAPY
     Dosage: 1MG/2MG UNK
     Dates: start: 19910910, end: 20000306
  4. FEMHRT [Suspect]
     Indication: HORMONE REPLACEMENT THERAPY
     Dosage: UNK
     Dates: start: 20000612, end: 20020101
  5. PREMPRO [Suspect]
     Indication: HORMONE REPLACEMENT THERAPY
     Dosage: 0.625MG/2.5MG
     Dates: start: 20000306, end: 20000607
  6. IMITREX [Concomitant]
     Indication: MIGRAINE
     Dosage: 50 MG, UNK
     Dates: start: 19980101, end: 20060101
  7. PROZAC [Concomitant]
     Indication: MIGRAINE
     Dosage: 20 MG, UNK
  8. PROZAC [Concomitant]
     Indication: ANXIETY
  9. PROZAC [Concomitant]
     Indication: DEPRESSION
  10. CALCIUM [Concomitant]
     Indication: OSTEOPOROSIS PROPHYLAXIS
     Dosage: UNK
     Dates: start: 20010725
  11. TOPAMAX [Concomitant]
     Indication: MIGRAINE
     Dosage: 25 MG, UNK
     Dates: start: 20020924, end: 20060915
  12. PREVACID [Concomitant]
     Indication: HIATUS HERNIA
     Dosage: 30 MG, UNK
     Dates: start: 20030130, end: 20050428
  13. PREVACID [Concomitant]
     Indication: OESOPHAGITIS
  14. PREVACID [Concomitant]
     Indication: GASTRITIS
  15. DIAZEPAM [Concomitant]
     Indication: ANXIETY
     Dosage: 2 MG, UNK
     Dates: start: 19740101, end: 20060101
  16. DIAZEPAM [Concomitant]
     Indication: MIGRAINE
  17. VALIUM [Concomitant]
     Indication: ANXIETY
     Dosage: 2 MG, UNK
     Dates: start: 19740101, end: 20060101
  18. VALIUM [Concomitant]
     Indication: MIGRAINE

REACTIONS (1)
  - BREAST CANCER FEMALE [None]
